FAERS Safety Report 4946297-0 (Version None)
Quarter: 2006Q1

REPORT INFORMATION
  Report Type: 
  Country: None (occurrence: None)
  Receive Date: 20060316
  Receipt Date: 20060316
  Transmission Date: 20060701
  Serious: Yes (Other)
  Sender: FDA-Public Use
  Company Number: None

PATIENT
  Age: 53 Year
  Sex: Male
  Weight: 80.7403 kg

DRUGS (1)
  1. VYTORIN [Suspect]
     Indication: BLOOD CHOLESTEROL INCREASED
     Dosage: 50 MG ONCE DAILY
     Dates: start: 20051222, end: 20060314

REACTIONS (3)
  - DIARRHOEA [None]
  - GASTROINTESTINAL PAIN [None]
  - HEPATIC ENZYME INCREASED [None]
